FAERS Safety Report 11700551 (Version 3)
Quarter: 2015Q4

REPORT INFORMATION
  Report Type: Spontaneous
  Country: PT (occurrence: PT)
  Receive Date: 20151105
  Receipt Date: 20151204
  Transmission Date: 20160304
  Serious: Yes (Life-Threatening, Other)
  Sender: FDA-Public Use
  Company Number: PT-ACTAVIS-2015-23499

PATIENT
  Age: 44 Year
  Sex: Female
  Weight: 68 kg

DRUGS (10)
  1. PACLITAXEL ACTAVIS [Suspect]
     Active Substance: PACLITAXEL
     Indication: BREAST CANCER
     Dosage: 36.6 NG, CYCLICAL, DOSE ADMINISTERED 20 MG/M^2; DILUTION IN 250 ML OF 5% GLUCOSE
     Route: 042
     Dates: start: 20151015, end: 20151015
  2. IBUPROFENO [Concomitant]
     Active Substance: IBUPROFEN
     Indication: PAIN
     Dosage: 600 MG, DAILY
     Route: 048
     Dates: start: 201503
  3. ORADEXON [Concomitant]
     Active Substance: DEXAMETHASONE
     Indication: PROPHYLAXIS OF NAUSEA AND VOMITING
     Dosage: 20 MG, DAILY
     Route: 042
     Dates: start: 20151015, end: 20151015
  4. CODEINA [Concomitant]
     Indication: COUGH
     Dosage: 1 DF, DAILY
     Route: 048
     Dates: start: 201510
  5. TAVIST ALLERGY [Concomitant]
     Active Substance: CLEMASTINE FUMARATE
     Indication: PROPHYLAXIS
     Dosage: 2 MG, DAILY (2 MG/2 ML)
     Route: 042
     Dates: start: 20151015, end: 20151015
  6. NOVOPLATINUM [Concomitant]
     Indication: BREAST CANCER
     Dosage: 405.3 MG, DAILY
     Route: 042
     Dates: start: 20151015, end: 20151015
  7. PARACETAMOL [Concomitant]
     Active Substance: ACETAMINOPHEN
     Indication: PAIN
     Dosage: 1000 MG, DAILY
     Route: 048
     Dates: start: 201503
  8. ONDANSETROM                        /00955301/ [Concomitant]
     Indication: PROPHYLAXIS OF NAUSEA AND VOMITING
     Dosage: 16 MG, DAILY (8 MG / 4 ML )
     Route: 042
     Dates: start: 20151015, end: 20151015
  9. DIAZEPAM. [Concomitant]
     Active Substance: DIAZEPAM
     Indication: PRODUCT USED FOR UNKNOWN INDICATION
     Dosage: 10 MG, DAILY
     Route: 048
     Dates: start: 201503
  10. METAMIZOL MAGNESICO [Concomitant]
     Active Substance: METAMIZOLE MAGNESIUM
     Indication: PRODUCT USED FOR UNKNOWN INDICATION
     Dosage: 575 MG, DAILY
     Route: 048

REACTIONS (4)
  - Abdominal pain [Recovered/Resolved]
  - Tachypnoea [Recovered/Resolved]
  - Rash macular [Recovered/Resolved]
  - Bronchospasm [Recovered/Resolved]

NARRATIVE: CASE EVENT DATE: 20151015
